FAERS Safety Report 19370569 (Version 2)
Quarter: 2021Q3

REPORT INFORMATION
  Report Type: Spontaneous
  Country: JP (occurrence: JP)
  Receive Date: 20210604
  Receipt Date: 20210701
  Transmission Date: 20211014
  Serious: Yes (Other)
  Sender: FDA-Public Use
  Company Number: JP-SUN PHARMACEUTICAL INDUSTRIES LTD-2021RR-299254

PATIENT
  Age: 41 Year
  Sex: Female

DRUGS (5)
  1. ZYPREXA [Suspect]
     Active Substance: OLANZAPINE
     Indication: SCHIZOPHRENIA
     Dosage: 10 MILLIGRAM, DAILY
     Route: 065
  2. QUETIAPINE YOSHITOMI PHARMACEUTICAL INDUSTRIES, LTD [Suspect]
     Active Substance: QUETIAPINE
     Indication: PSYCHOTIC BEHAVIOUR
     Dosage: 600 MILLIGRAM, DAILY
     Route: 065
  3. QUETIAPINE YOSHITOMI PHARMACEUTICAL INDUSTRIES, LTD [Suspect]
     Active Substance: QUETIAPINE
     Dosage: 750 MILLIGRAM, DAILY
     Route: 065
  4. ABILIFY [Suspect]
     Active Substance: ARIPIPRAZOLE
     Indication: PRODUCT USED FOR UNKNOWN INDICATION
     Dosage: 24 MILLIGRAM, UNK
     Route: 065
  5. RIVOTRIL [Suspect]
     Active Substance: CLONAZEPAM
     Indication: PSYCHOTIC BEHAVIOUR
     Dosage: 1.5 MILLIGRAM, DAILY
     Route: 065

REACTIONS (4)
  - Dystonia [Recovering/Resolving]
  - Therapeutic product effect incomplete [Unknown]
  - Drug ineffective [Unknown]
  - Condition aggravated [Unknown]
